FAERS Safety Report 7974837-6 (Version None)
Quarter: 2011Q4

REPORT INFORMATION
  Report Type: 
  Country: None (occurrence: None)
  Receive Date: 20111213
  Receipt Date: 20111208
  Transmission Date: 20120403
  Serious: Yes (Disabling)
  Sender: FDA-Public Use
  Company Number: JP-ASTRAZENECA-2011SE74572

PATIENT
  Age: 76 Year
  Sex: Female
  Weight: 77 kg

DRUGS (3)
  1. CENTROVISION [Concomitant]
     Indication: MACULAR DEGENERATION
     Route: 048
  2. CANDESARTAN CILEXETIL/HYDROCHLOROTHIAZIDE [Suspect]
     Indication: HYPERTENSION
     Dosage: 32/12.5 MG EVERY DAY
     Route: 048
     Dates: start: 20060101, end: 20110101
  3. LUCENTIS [Concomitant]
     Indication: MACULAR DEGENERATION
     Route: 042

REACTIONS (1)
  - AGE-RELATED MACULAR DEGENERATION [None]
